FAERS Safety Report 4627342-9 (Version None)
Quarter: 2005Q1

REPORT INFORMATION
  Report Type: 
  Country: None (occurrence: None)
  Receive Date: 20050331
  Receipt Date: 20050315
  Transmission Date: 20050727
  Serious: Yes (Other)
  Sender: FDA-Public Use
  Company Number: T05-CAN-00847-01

PATIENT
  Age: 55 Year
  Sex: Female
  Weight: 104 kg

DRUGS (26)
  1. CELEXA [Suspect]
     Indication: CORONARY ARTERY DISEASE
     Dosage: 20 MG QD; PO
     Route: 048
     Dates: start: 20041222, end: 20050131
  2. CELEXA [Suspect]
     Indication: DEPRESSION
     Dosage: 20 MG QD; PO
     Route: 048
     Dates: start: 20041222, end: 20050131
  3. CELEXA [Suspect]
     Indication: CORONARY ARTERY DISEASE
     Dosage: 20 MG QD; PO
     Route: 048
     Dates: start: 20050210
  4. CELEXA [Suspect]
     Indication: DEPRESSION
     Dosage: 20 MG QD; PO
     Route: 048
     Dates: start: 20050210
  5. CELEXA [Suspect]
     Indication: CORONARY ARTERY DISEASE
     Dosage: 20 MG BID; PO
     Route: 048
     Dates: start: 20050201, end: 20050209
  6. CELEXA [Suspect]
     Indication: DEPRESSION
     Dosage: 20 MG BID; PO
     Route: 048
     Dates: start: 20050201, end: 20050209
  7. WARFARIN SODIUM [Suspect]
     Indication: ARTIFICIAL HEART DEVICE USER
     Dosage: 4 MG QW; PO
     Route: 048
     Dates: end: 20050209
  8. WARFARIN SODIUM [Suspect]
     Indication: ATRIAL FIBRILLATION
     Dosage: 4 MG QW; PO
     Route: 048
     Dates: end: 20050209
  9. WARFARIN SODIUM [Suspect]
     Indication: ARTIFICIAL HEART DEVICE USER
     Dosage: 3 MG UNK; PO
     Route: 048
     Dates: end: 20050209
  10. WARFARIN SODIUM [Suspect]
     Indication: ATRIAL FIBRILLATION
     Dosage: 3 MG UNK; PO
     Route: 048
     Dates: end: 20050209
  11. WARFARIN SODIUM [Suspect]
     Indication: ARTIFICIAL HEART DEVICE USER
     Dosage: 2 MG QD; PO
     Route: 048
     Dates: start: 20050210, end: 20050210
  12. WARFARIN SODIUM [Suspect]
     Indication: ATRIAL FIBRILLATION
     Dosage: 2 MG QD; PO
     Route: 048
     Dates: start: 20050210, end: 20050210
  13. WARFARIN SODIUM [Suspect]
     Indication: ARTIFICIAL HEART DEVICE USER
     Dosage: 3 MG QD; PO
     Route: 048
     Dates: start: 20050211, end: 20050214
  14. WARFARIN SODIUM [Suspect]
     Indication: ATRIAL FIBRILLATION
     Dosage: 3 MG QD; PO
     Route: 048
     Dates: start: 20050211, end: 20050214
  15. WARFARIN SODIUM [Suspect]
     Indication: ARTIFICIAL HEART DEVICE USER
     Dosage: 4 MG UNK; PO
     Route: 048
     Dates: start: 20050215
  16. WARFARIN SODIUM [Suspect]
     Indication: ATRIAL FIBRILLATION
     Dosage: 4 MG UNK; PO
     Route: 048
     Dates: start: 20050215
  17. WARFARIN SODIUM [Suspect]
     Indication: ARTIFICIAL HEART DEVICE USER
     Dosage: 3 MG UNK; PO
     Route: 048
     Dates: start: 20040215
  18. WARFARIN SODIUM [Suspect]
     Indication: ATRIAL FIBRILLATION
     Dosage: 3 MG UNK; PO
     Route: 048
     Dates: start: 20040215
  19. SYNTHROID [Concomitant]
  20. MONOCOR (BISOPROLOL FUMARATE) [Concomitant]
  21. FUROSEMIDE [Concomitant]
  22. ACETYLSALICYLIC ACID SRT [Concomitant]
  23. ZOCOR [Concomitant]
  24. IRON [Concomitant]
  25. K-DUR (OTASSIUM CHLORIDE) [Concomitant]
  26. ZAROXOLYN [Concomitant]

REACTIONS (5)
  - CONTUSION [None]
  - DRUG INTERACTION [None]
  - HAEMATOMA [None]
  - HAEMORRHAGIC DIATHESIS [None]
  - INTERNATIONAL NORMALISED RATIO INCREASED [None]
